FAERS Safety Report 15711740 (Version 2)
Quarter: 2018Q4

REPORT INFORMATION
  Report Type: Report from Study
  Country: None (occurrence: US)
  Receive Date: 20181212
  Receipt Date: 20181219
  Transmission Date: 20190205
  Serious: Yes (Hospitalization, Other)
  Sender: FDA-Public Use
  Company Number: US-ABBVIE-18S-163-2584448-00

PATIENT
  Age: 72 Year
  Sex: Female
  Weight: 55.39 kg

DRUGS (11)
  1. LATANOPROST. [Concomitant]
     Active Substance: LATANOPROST
     Indication: PRODUCT USED FOR UNKNOWN INDICATION
  2. FISH OIL [Concomitant]
     Active Substance: FISH OIL
     Indication: INTRA-OCULAR INJECTION
  3. CREON [Suspect]
     Active Substance: PANCRELIPASE AMYLASE\PANCRELIPASE LIPASE\PANCRELIPASE PROTEASE
     Indication: PANCREATIC FAILURE
     Dosage: THREE CAPSULES WITH EACH MEAL AND ONE CAPSULE WITH EACH SNACK
     Route: 048
     Dates: start: 20170702
  4. OCUVITE [Concomitant]
     Active Substance: VITAMINS
     Indication: MACULAR DEGENERATION
  5. VITAMIN D3 [Concomitant]
     Active Substance: CHOLECALCIFEROL
     Indication: PRODUCT USED FOR UNKNOWN INDICATION
  6. CALTRATE PLUS WITH VITAMIN D AND MINERALS [Concomitant]
     Active Substance: CALCIUM\CHOLECALCIFEROL\COPPER\MAGNESIUM\MANGANESE\ZINC
     Indication: PRODUCT USED FOR UNKNOWN INDICATION
  7. AVASTIN [Concomitant]
     Active Substance: BEVACIZUMAB
     Indication: INTRA-OCULAR INJECTION
  8. GARDEN OF LIFE PROTEIN [Concomitant]
     Indication: PRODUCT USED FOR UNKNOWN INDICATION
  9. CALCIUM [Concomitant]
     Active Substance: CALCIUM
     Indication: BONE DISORDER
  10. MULTIVITAMIN [Concomitant]
     Active Substance: VITAMINS
     Indication: VITAMIN SUPPLEMENTATION
  11. ANESTHETICS, GENERAL [Concomitant]
     Active Substance: UNSPECIFIED INGREDIENT
     Indication: PRODUCT USED FOR UNKNOWN INDICATION

REACTIONS (16)
  - Gastrointestinal infection [Unknown]
  - Rectal abscess [Unknown]
  - Diarrhoea [Unknown]
  - Intestinal obstruction [Unknown]
  - Pancreatic disorder [Unknown]
  - Anastomotic complication [Not Recovered/Not Resolved]
  - Intestinal stenosis [Unknown]
  - Intestinal anastomosis [Unknown]
  - Enterocutaneous fistula [Unknown]
  - Pancreatic failure [Unknown]
  - Ileostomy [Unknown]
  - Colitis ulcerative [Unknown]
  - Pancreatic mass [Unknown]
  - Biliary tract operation [Unknown]
  - Pouchitis [Unknown]
  - Rectal abscess [Unknown]

NARRATIVE: CASE EVENT DATE: 2017
